FAERS Safety Report 21239128 (Version 1)
Quarter: 2022Q3

REPORT INFORMATION
  Report Type: Spontaneous
  Country: AU (occurrence: AU)
  Receive Date: 20220822
  Receipt Date: 20220822
  Transmission Date: 20221026
  Serious: Yes (Other)
  Sender: FDA-Public Use
  Company Number: AU-PFIZER INC-PV202200046903

PATIENT
  Age: 85 Year
  Sex: Female

DRUGS (9)
  1. LATANOPROST [Suspect]
     Active Substance: LATANOPROST
  2. DOCUSATE SODIUM [Suspect]
     Active Substance: DOCUSATE SODIUM
  3. CANDESARTAN CILEXETIL [Suspect]
     Active Substance: CANDESARTAN CILEXETIL
  4. CITALOPRAM HYDROBROMIDE [Suspect]
     Active Substance: CITALOPRAM HYDROBROMIDE
  5. BENSERAZIDE HYDROCHLORIDE [Suspect]
     Active Substance: BENSERAZIDE HYDROCHLORIDE
  6. BRINZOLAMIDE [Suspect]
     Active Substance: BRINZOLAMIDE
  7. FELODIPINE [Suspect]
     Active Substance: FELODIPINE
  8. LEVODOPA [Suspect]
     Active Substance: LEVODOPA
  9. RIVASTIGMINE [Suspect]
     Active Substance: RIVASTIGMINE

REACTIONS (1)
  - Colitis microscopic [Unknown]
